FAERS Safety Report 8603816-0 (Version None)
Quarter: 2012Q3

REPORT INFORMATION
  Report Type: 
  Country: None (occurrence: None)
  Receive Date: 20120818
  Receipt Date: 20120810
  Transmission Date: 20120928
  Serious: Yes (Hospitalization, Other)
  Sender: FDA-Public Use
  Company Number: US-BAXTER-2012BAX007855

PATIENT
  Sex: Female

DRUGS (2)
  1. DIANEAL LOW CALCIUM W/ DEXTROSE 1.5% [Suspect]
     Route: 033
     Dates: start: 20090902
  2. DIANEAL [Suspect]
     Route: 033
     Dates: start: 20090902

REACTIONS (4)
  - PERITONITIS [None]
  - BACK PAIN [None]
  - PERITONEAL DIALYSIS COMPLICATION [None]
  - RENAL MASS [None]
